FAERS Safety Report 8783139 (Version 2)
Quarter: 2012Q4

REPORT INFORMATION
  Report Type: Report from Study
  Country: FR (occurrence: FR)
  Receive Date: 20120913
  Receipt Date: 20120913
  Transmission Date: 20130627
  Serious: Yes (Death, Life-Threatening)
  Sender: FDA-Public Use
  Company Number: FR-ROCHE-757900

PATIENT
  Sex: Female

DRUGS (5)
  1. MABTHERA [Suspect]
     Indication: POST TRANSPLANT LYMPHOPROLIFERATIVE DISORDER
     Dosage: 4 X 375 mg/m2
     Route: 042
     Dates: start: 20050316, end: 20050416
  2. CYCLOPHOSPHAMIDE [Suspect]
     Indication: POST TRANSPLANT LYMPHOPROLIFERATIVE DISORDER
     Dosage: TOTAL DOSE: 100%. DATE OF LAST DOSE PRIOR TO SAE: 23 JUNE 2005.
     Route: 042
  3. DOXORUBICIN HYDROCHLORIDE [Suspect]
     Indication: POST TRANSPLANT LYMPHOPROLIFERATIVE DISORDER
     Dosage: TOTAL DOSE: 100%. DATE OF LAST DOSE PRIOR TO SAE: 23 JUNE 2005.
     Route: 042
  4. VINCRISTINE [Suspect]
     Indication: POST TRANSPLANT LYMPHOPROLIFERATIVE DISORDER
     Dosage: TOTAL DOSE: 100%. DATE OF LAST DOSE PRIOR TO SAE: 23 JUNE 2005.
     Route: 048
  5. PREDNISOLONE [Suspect]
     Indication: POST TRANSPLANT LYMPHOPROLIFERATIVE DISORDER
     Dosage: TOTAL DOSE: 100%. DATE OF LAST DOSE PRIOR TO SAE: 23 JUNE 2005. Dose 5X100 mg
     Route: 042

REACTIONS (1)
  - Disease progression [Fatal]
